FAERS Safety Report 4323397-X (Version None)
Quarter: 2004Q1

REPORT INFORMATION
  Report Type: 
  Country: None (occurrence: None)
  Receive Date: 20040325
  Receipt Date: 20040206
  Transmission Date: 20041129
  Serious: Yes (Other)
  Sender: FDA-Public Use
  Company Number: JP-GLAXOSMITHKLINE-B0323056A

PATIENT
  Age: 24 Year
  Sex: Female
  Weight: 55 kg

DRUGS (19)
  1. PAXIL [Suspect]
     Indication: PANIC DISORDER
     Route: 048
     Dates: start: 20031121, end: 20040222
  2. DIAZEPAM [Concomitant]
     Indication: DRUG USE FOR UNKNOWN INDICATION
     Dosage: 6MG PER DAY
     Route: 048
     Dates: start: 20031121, end: 20031214
  3. NITRAZEPAM [Concomitant]
     Indication: INSOMNIA
     Route: 048
     Dates: start: 20031204, end: 20031221
  4. FLUNITRAZEPAM [Concomitant]
     Indication: INSOMNIA
     Route: 048
     Dates: start: 20031121
  5. FLUVOXAMINE MALEATE [Concomitant]
     Indication: PANIC DISORDER
     Route: 048
     Dates: start: 20031215, end: 20040118
  6. CLOMIPRAMINE HCL [Concomitant]
     Indication: PANIC DISORDER
     Dosage: 30MG PER DAY
     Route: 048
     Dates: start: 20040113, end: 20040118
  7. ETIZOLAM [Concomitant]
     Indication: DRUG USE FOR UNKNOWN INDICATION
     Route: 065
  8. METOCLOPRAMIDE HCL [Concomitant]
     Indication: DRUG USE FOR UNKNOWN INDICATION
     Dosage: 15MG PER DAY
     Route: 048
     Dates: start: 20040108, end: 20040215
  9. TIZANIDINE HYDROCHLORIDE [Concomitant]
     Indication: DRUG USE FOR UNKNOWN INDICATION
     Route: 048
     Dates: start: 20040127, end: 20040208
  10. VALPROATE SODIUM [Concomitant]
     Indication: DRUG USE FOR UNKNOWN INDICATION
     Dosage: 200MG PER DAY
     Route: 048
     Dates: start: 20040205, end: 20040208
  11. ZOLPIDEM [Concomitant]
     Indication: INSOMNIA
     Dosage: 10MG PER DAY
     Route: 048
     Dates: start: 20040113, end: 20040208
  12. BROMAZEPAM [Concomitant]
     Indication: DRUG USE FOR UNKNOWN INDICATION
     Route: 048
  13. BROTIZOLAM [Concomitant]
     Indication: INSOMNIA
     Dosage: .25MG PER DAY
     Route: 048
     Dates: start: 20040105
  14. AMOXAPINE [Concomitant]
     Dosage: 5MG PER DAY
     Route: 048
     Dates: start: 20040216, end: 20040216
  15. CARBAMAZEPINE [Concomitant]
     Dosage: 150MG PER DAY
     Route: 048
     Dates: start: 20040130, end: 20040203
  16. ETHYL LOFLAZEPATE [Concomitant]
     Dosage: 1MG PER DAY
     Route: 048
     Dates: start: 20031221, end: 20040118
  17. TANDOSPIRONE CITRATE [Concomitant]
     Route: 048
     Dates: start: 20031222, end: 20040112
  18. TOFISOPAM [Concomitant]
     Dosage: 150MG PER DAY
     Route: 048
     Dates: start: 20031215, end: 20031221
  19. ALPRAZOLAM [Concomitant]
     Route: 048

REACTIONS (6)
  - ABDOMINAL PAIN UPPER [None]
  - CHEST PAIN [None]
  - DIAPHRAGMALGIA [None]
  - DRUG EFFECT DECREASED [None]
  - GALACTORRHOEA [None]
  - HICCUPS [None]
